FAERS Safety Report 5058506-0 (Version None)
Quarter: 2006Q2

REPORT INFORMATION
  Report Type: 
  Country: None (occurrence: None)
  Receive Date: 20060627
  Receipt Date: 20050805
  Transmission Date: 20061013
  Serious: Yes (Hospitalization)
  Sender: FDA-Public Use
  Company Number: 413376

PATIENT
  Age: 54 Year
  Sex: Female
  Weight: 97.5 kg

DRUGS (1)
  1. XELODA [Suspect]
     Indication: DRUG USE FOR UNKNOWN INDICATION
     Dosage: 1 GRAM 2 PER DAY ORAL
     Route: 048
     Dates: start: 20050617, end: 20050723

REACTIONS (1)
  - CHEST PAIN [None]
